FAERS Safety Report 7685167-4 (Version None)
Quarter: 2011Q3

REPORT INFORMATION
  Report Type: 
  Country: None (occurrence: None)
  Receive Date: 20110816
  Receipt Date: 20110812
  Transmission Date: 20111222
  Serious: Yes (Death, Hospitalization, Other)
  Sender: FDA-Public Use
  Company Number: RO-AMGEN-ROUSP2011041306

PATIENT
  Age: 28 Year
  Sex: Female

DRUGS (6)
  1. ENBREL [Suspect]
     Indication: JUVENILE ARTHRITIS
  2. METHOTREXATE [Suspect]
     Indication: RHEUMATOID ARTHRITIS
     Dosage: UNK
     Dates: start: 20070101
  3. ASPENTER [Concomitant]
     Indication: ISCHAEMIC CARDIOMYOPATHY
     Dosage: 75 MG, 1X/DAY
     Route: 048
     Dates: start: 20070101, end: 20110714
  4. ENBREL [Suspect]
     Indication: RHEUMATOID ARTHRITIS
     Dosage: 50 MG, WEEKLY
     Route: 058
     Dates: start: 20080101, end: 20110601
  5. CYCLOSPORINE [Suspect]
     Indication: RHEUMATOID ARTHRITIS
     Dosage: 200 MG, 1X/DAY
     Route: 048
     Dates: start: 20100101
  6. METOPROLOL TARTRATE [Concomitant]
     Indication: ISCHAEMIC CARDIOMYOPATHY
     Dosage: 50 MG, 1X/DAY
     Route: 048
     Dates: start: 20070101

REACTIONS (6)
  - PANCYTOPENIA [None]
  - MULTI-ORGAN FAILURE [None]
  - ENCEPHALITIS VIRAL [None]
  - DISSEMINATED INTRAVASCULAR COAGULATION [None]
  - URINARY TRACT INFECTION [None]
  - HISTIOCYTOSIS HAEMATOPHAGIC [None]
